FAERS Safety Report 4783977-4 (Version None)
Quarter: 2005Q3

REPORT INFORMATION
  Report Type: 
  Country: None (occurrence: None)
  Receive Date: 20050927
  Receipt Date: 20050804
  Transmission Date: 20060218
  Serious: No
  Sender: FDA-Public Use
  Company Number: USA0508104757

PATIENT
  Sex: Female

DRUGS (3)
  1. STRATTERA [Suspect]
     Dates: start: 20040804, end: 20040821
  2. ADDERALL XR 15 [Concomitant]
  3. CONCERTA [Concomitant]

REACTIONS (1)
  - TIC [None]
